FAERS Safety Report 10047748 (Version 1)
Quarter: 2014Q1

REPORT INFORMATION
  Report Type: Spontaneous
  Country: US (occurrence: None)
  Receive Date: 20140306
  Receipt Date: 20140306
  Transmission Date: 20141002
  Serious: Yes (Other)
  Sender: FDA-Public Use
  Company Number: 163-21880-13070858

PATIENT
  Age: 64 Year
  Sex: Male
  Weight: 89.4 kg

DRUGS (3)
  1. REVLIMID [Suspect]
     Indication: PLASMA CELL MYELOMA
     Dosage: 25 MG, 14 IN 21 D, PO 06/04/2013 - UNKNOWN THERAPY DATES
     Route: 048
     Dates: start: 20130604
  2. ZOMETA (ZOLEDRONIC ACID) [Concomitant]
  3. VELCADE (BORTEZOMIB) [Concomitant]

REACTIONS (7)
  - Swelling face [None]
  - Pruritus [None]
  - Erythema [None]
  - Lip swelling [None]
  - Local swelling [None]
  - Ear swelling [None]
  - Local swelling [None]
